FAERS Safety Report 7820841-8 (Version None)
Quarter: 2011Q4

REPORT INFORMATION
  Report Type: 
  Country: None (occurrence: None)
  Receive Date: 20111018
  Receipt Date: 20111010
  Transmission Date: 20120403
  Serious: Yes (Hospitalization)
  Sender: FDA-Public Use
  Company Number: US-ABBOTT-11P-163-0864230-00

PATIENT
  Sex: Female
  Weight: 74.002 kg

DRUGS (10)
  1. FOLIC ACID [Concomitant]
     Indication: PRODUCT USED FOR UNKNOWN INDICATION
  2. FAMOTIDINE [Concomitant]
     Indication: PRODUCT USED FOR UNKNOWN INDICATION
  3. PREDNISONE [Concomitant]
  4. HUMIRA [Suspect]
     Indication: SYSTEMIC LUPUS ERYTHEMATOSUS
     Dosage: INCREASED, FOOT GOT PURPLE SWELLING
     Route: 058
     Dates: start: 20111001
  5. LISINOPRIL [Concomitant]
     Indication: HYPERTENSION
  6. AMLODIPINE [Concomitant]
     Indication: HYPERTENSION
  7. UNKNOWN BLOOD THINNER [Suspect]
     Indication: PRODUCT USED FOR UNKNOWN INDICATION
     Dates: start: 20110901, end: 20110901
  8. NITRO PATCHES [Concomitant]
     Indication: OEDEMA PERIPHERAL
  9. HUMIRA [Suspect]
     Indication: RHEUMATOID ARTHRITIS
     Route: 058
     Dates: start: 20110601, end: 20111001
  10. PREDNISONE [Concomitant]
     Indication: RHEUMATOID ARTHRITIS

REACTIONS (7)
  - SKIN DISCOLOURATION [None]
  - COAGULOPATHY [None]
  - PLASMA VISCOSITY DECREASED [None]
  - HEART RATE DECREASED [None]
  - HOSPITALISATION [None]
  - RASH MACULAR [None]
  - OEDEMA PERIPHERAL [None]
